FAERS Safety Report 19002412 (Version 1)
Quarter: 2021Q1

REPORT INFORMATION
  Report Type: Spontaneous
  Country: US (occurrence: US)
  Receive Date: 20210312
  Receipt Date: 20210312
  Transmission Date: 20210420
  Serious: Yes (Hospitalization)
  Sender: FDA-Public Use
  Company Number: None

PATIENT
  Sex: Male

DRUGS (5)
  1. SILDENAFIL. [Suspect]
     Active Substance: SILDENAFIL
     Indication: PULMONARY HYPERTENSION
     Dosage: ?          OTHER FREQUENCY:EVERY 8 HOURS;?
     Route: 048
  2. ASPIRIN. [Concomitant]
     Active Substance: ASPIRIN
  3. POLY?VI?SOL [Concomitant]
     Active Substance: VITAMINS
  4. DIGOXIN. [Concomitant]
     Active Substance: DIGOXIN
  5. EPANED [Concomitant]
     Active Substance: ENALAPRIL MALEATE

REACTIONS (1)
  - Urinary tract disorder [None]
